FAERS Safety Report 19777569 (Version 1)
Quarter: 2021Q3

REPORT INFORMATION
  Report Type: Spontaneous
  Country: US (occurrence: US)
  Receive Date: 20210831
  Receipt Date: 20210831
  Transmission Date: 20211014
  Serious: No
  Sender: FDA-Public Use
  Company Number: None

PATIENT
  Age: 81 Year
  Sex: Female

DRUGS (2)
  1. COSENTYX [Suspect]
     Active Substance: SECUKINUMAB
     Indication: PSORIASIS
     Dosage: ?          OTHER FREQUENCY:DAY28THENEVERY4WKS;?
     Route: 058
     Dates: start: 202107
  2. COSENTYX [Suspect]
     Active Substance: SECUKINUMAB
     Indication: PSORIASIS

REACTIONS (3)
  - Fall [None]
  - Hip fracture [None]
  - Diarrhoea [None]
